FAERS Safety Report 25259973 (Version 1)
Quarter: 2025Q2

REPORT INFORMATION
  Report Type: Spontaneous
  Country: US (occurrence: None)
  Receive Date: 20250430
  Receipt Date: 20250430
  Transmission Date: 20250716
  Serious: Yes (Hospitalization)
  Sender: FDA-CTU
  Company Number: None

PATIENT
  Age: 67 Year
  Sex: Male

DRUGS (9)
  1. PREDNISONE [Suspect]
     Active Substance: PREDNISONE
     Indication: Renal transplant
     Dosage: FREQUENCY : DAILY;?
     Route: 048
  2. mycophenolic 180 mg DR tablet [Concomitant]
  3. aspirin 81 mg EC tablet [Concomitant]
  4. famotidine 20 mg tablet [Concomitant]
  5. sulfamethoxazole/trimethoprim 400mg-80 mg tablet [Concomitant]
  6. famciclovir 250 mg tablet [Concomitant]
  7. FLUCONAZOLE [Concomitant]
     Active Substance: FLUCONAZOLE
  8. OMEPRAZOLE [Concomitant]
     Active Substance: OMEPRAZOLE
  9. CARVEDILOL [Concomitant]
     Active Substance: CARVEDILOL

REACTIONS (4)
  - Haematochezia [None]
  - Diverticulitis [None]
  - Fungal infection [None]
  - Infected intestinal ulcer [None]

NARRATIVE: CASE EVENT DATE: 20250418
